FAERS Safety Report 24461642 (Version 1)
Quarter: 2024Q4

REPORT INFORMATION
  Report Type: Spontaneous
  Country: IT (occurrence: IT)
  Receive Date: 20241018
  Receipt Date: 20241018
  Transmission Date: 20250115
  Serious: No
  Sender: ROCHE
  Company Number: IT-ROCHE-3551402

PATIENT
  Age: 68 Year
  Sex: Male

DRUGS (10)
  1. RITUXIMAB [Suspect]
     Active Substance: RITUXIMAB
     Indication: Autoimmune haemolytic anaemia
     Dosage: FOR 4 WEEKS
     Route: 042
  2. MYCOPHENOLATE MOFETIL [Suspect]
     Active Substance: MYCOPHENOLATE MOFETIL
     Indication: Prophylaxis against graft versus host disease
     Route: 065
  3. CYCLOPHOSPHAMIDE [Suspect]
     Active Substance: CYCLOPHOSPHAMIDE
     Indication: Prophylaxis against graft versus host disease
     Route: 065
  4. CYCLOSPORINE [Suspect]
     Active Substance: CYCLOSPORINE
     Indication: Prophylaxis against graft versus host disease
     Route: 065
  5. PREDNISONE [Suspect]
     Active Substance: PREDNISONE
     Indication: Autoimmune haemolytic anaemia
     Route: 048
  6. BUSULFAN [Concomitant]
     Active Substance: BUSULFAN
  7. THIOTEPA [Concomitant]
     Active Substance: THIOTEPA
  8. FLUDARABINE [Concomitant]
     Active Substance: FLUDARABINE PHOSPHATE
  9. DARATUMUMAB [Concomitant]
     Active Substance: DARATUMUMAB
  10. DEFEROXAMINE [Concomitant]
     Active Substance: DEFEROXAMINE MESYLATE

REACTIONS (3)
  - COVID-19 [Unknown]
  - Cytomegalovirus infection reactivation [Unknown]
  - Drug ineffective [Unknown]
